FAERS Safety Report 20412805 (Version 1)
Quarter: 2022Q1

REPORT INFORMATION
  Report Type: Spontaneous
  Country: CN (occurrence: CN)
  Receive Date: 20220201
  Receipt Date: 20220201
  Transmission Date: 20220424
  Serious: Yes (Other)
  Sender: FDA-Public Use
  Company Number: CN-009507513-2201CHN007745

PATIENT
  Sex: Female
  Weight: 52 kg

DRUGS (1)
  1. CILASTATIN SODIUM\IMIPENEM [Suspect]
     Active Substance: CILASTATIN SODIUM\IMIPENEM
     Indication: Infection
     Dosage: DOSE: 1 G, FREQUENCY: ONCE
     Route: 041
     Dates: start: 20220110, end: 20220110

REACTIONS (7)
  - Seizure [Recovering/Resolving]
  - Pyrexia [Recovering/Resolving]
  - Neurological symptom [Recovering/Resolving]
  - Condition aggravated [Unknown]
  - Heart rate abnormal [Unknown]
  - Blood pressure abnormal [Unknown]
  - Chills [Recovering/Resolving]

NARRATIVE: CASE EVENT DATE: 20220110
